FAERS Safety Report 15804844 (Version 2)
Quarter: 2019Q1

REPORT INFORMATION
  Report Type: Spontaneous
  Country: ES (occurrence: ES)
  Receive Date: 20190109
  Receipt Date: 20190122
  Transmission Date: 20190417
  Serious: Yes (Other)
  Sender: FDA-Public Use
  Company Number: ES-ACCORD-101116

PATIENT
  Age: 75 Year
  Sex: Female

DRUGS (9)
  1. LEUCOVORIN. [Suspect]
     Active Substance: LEUCOVORIN
     Indication: COLORECTAL CANCER METASTATIC
     Dosage: ALSO TAKEN FROM 18-AUG-2014 TO 18-AUG-2014
     Route: 041
     Dates: start: 20140519, end: 20140519
  2. GRANISETRON [Concomitant]
     Active Substance: GRANISETRON
     Indication: PROPHYLAXIS
  3. AFLIBERCEPT [Suspect]
     Active Substance: AFLIBERCEPT
     Indication: COLORECTAL CANCER METASTATIC
     Dosage: CYCLICAL
     Route: 041
     Dates: start: 20140818, end: 20140818
  4. FOLINIC ACID [Suspect]
     Active Substance: LEUCOVORIN
     Indication: COLORECTAL CANCER METASTATIC
     Dosage: CYCLICAL
     Route: 041
     Dates: start: 20140818, end: 20140818
  5. FLUOROURACIL. [Suspect]
     Active Substance: FLUOROURACIL
     Indication: COLORECTAL CANCER METASTATIC
     Dosage: ALSO TAKEN 2028 MG FROM 19-MAY-2014 TO 19-MAY-2014
     Route: 042
     Dates: start: 20140818, end: 20140818
  6. AFLIBERCEPT [Suspect]
     Active Substance: AFLIBERCEPT
     Indication: COLORECTAL CANCER METASTATIC
     Dosage: ALSO TAKEN FROM 18-AUG-2014 TO 18-AUG-2014
     Route: 041
     Dates: start: 20140519, end: 20140519
  7. ATORVASTATIN [Concomitant]
     Active Substance: ATORVASTATIN
     Indication: PRODUCT USED FOR UNKNOWN INDICATION
  8. IRINOTECAN HYDROCHLORIDE ENCAPSULATED IN NANOLIPOSOMAL PARTICLES [Suspect]
     Active Substance: IRINOTECAN HYDROCHLORIDE
     Indication: COLORECTAL CANCER METASTATIC
     Dosage: CYCLICAL
     Route: 041
     Dates: start: 20140519, end: 20140519
  9. PEGYLATED LIPOSOMAL IRINOTECAN [Suspect]
     Active Substance: IRINOTECAN HYDROCHLORIDE
     Indication: COLORECTAL CANCER METASTATIC
     Dosage: ALSO TAKEN FROM 19-MAY-2014 TO 19-MAY-2014
     Route: 041
     Dates: start: 20140818, end: 20140818

REACTIONS (3)
  - Diarrhoea [Recovered/Resolved]
  - Pulmonary embolism [Recovering/Resolving]
  - Hypertension [Recovered/Resolved]

NARRATIVE: CASE EVENT DATE: 20140814
